FAERS Safety Report 9067726 (Version 1)
Quarter: 2013Q1

REPORT INFORMATION
  Report Type: Spontaneous
  Country: US (occurrence: US)
  Receive Date: 20130206
  Receipt Date: 20130206
  Transmission Date: 20140127
  Serious: Yes (Other)
  Sender: FDA-Public Use
  Company Number: US-PFIZER INC-2013042549

PATIENT
  Age: 78 Year
  Sex: Male

DRUGS (1)
  1. INLYTA [Suspect]
     Indication: MALIGNANT URINARY TRACT NEOPLASM
     Dosage: 10 MG (2 TABLETS OF 5 MG)
     Route: 048
     Dates: start: 20120409

REACTIONS (3)
  - Dysentery [Unknown]
  - Weight decreased [Unknown]
  - Diarrhoea [Unknown]
